FAERS Safety Report 20627769 (Version 1)
Quarter: 2022Q1

REPORT INFORMATION
  Report Type: Spontaneous
  Country: CN (occurrence: CN)
  Receive Date: 20220323
  Receipt Date: 20220323
  Transmission Date: 20220423
  Serious: Yes (Other)
  Sender: FDA-Public Use
  Company Number: CN-GLAXOSMITHKLINE-CN2022APC049629

PATIENT
  Age: 59 Year
  Sex: Male
  Weight: 53 kg

DRUGS (3)
  1. LAMOTRIGINE [Suspect]
     Active Substance: LAMOTRIGINE
     Indication: Delusional disorder, unspecified type
     Dosage: 0.5 DF(TABLET), QD
     Route: 048
     Dates: start: 20220208, end: 20220316
  2. QUETIAPINE FUMARATE [Suspect]
     Active Substance: QUETIAPINE FUMARATE
     Indication: Delusional disorder, unspecified type
     Dosage: 2.0 DF, QD
     Route: 048
     Dates: start: 20220208, end: 20220316
  3. MIRTAZAPINE [Suspect]
     Active Substance: MIRTAZAPINE
     Indication: Delusional disorder, unspecified type
     Dosage: 1.5 DF, QD
     Route: 048
     Dates: start: 20220208, end: 20220316

REACTIONS (1)
  - Hypothyroidism [Not Recovered/Not Resolved]

NARRATIVE: CASE EVENT DATE: 20220224
